FAERS Safety Report 8924334 (Version 2)
Quarter: 2012Q4

REPORT INFORMATION
  Report Type: 
  Country: RU (occurrence: RU)
  Receive Date: 20121126
  Receipt Date: 20121228
  Transmission Date: 20130627
  Serious: Yes (Other)
  Sender: FDA-Public Use
  Company Number: RU-GLAXOSMITHKLINE-B0846555A

PATIENT
  Age: 2 Year
  Sex: Female

DRUGS (7)
  1. AVAMYS [Suspect]
     Indication: ADENOIDITIS
     Dosage: 55MGK per day
     Route: 045
     Dates: start: 20121030
  2. UNKNOWN DRUG [Concomitant]
     Indication: ADENOIDITIS
     Route: 061
     Dates: start: 20121030, end: 20121107
  3. TETRYZOLINE HYDROCHLORIDE [Concomitant]
     Indication: ADENOIDITIS
     Route: 045
     Dates: start: 20121030, end: 20121107
  4. POTASSIUM CHLORIDE + CALCIUM CHLORIDE + SODIUM CHLORIDE [Concomitant]
     Indication: ADENOIDITIS
     Route: 045
     Dates: start: 20121030, end: 20121107
  5. HERBAL MEDICATION [Concomitant]
     Indication: ADENOIDITIS
     Route: 048
     Dates: start: 20121030, end: 20121107
  6. ERESPAL [Concomitant]
     Indication: ADENOIDITIS
     Route: 048
     Dates: start: 20121030, end: 20121107
  7. CLARITIN [Concomitant]
     Indication: ADENOIDITIS
     Route: 048
     Dates: start: 20121030, end: 20121107

REACTIONS (4)
  - Alpha haemolytic streptococcal infection [Recovering/Resolving]
  - Cytomegalovirus infection [Unknown]
  - Tonsillar disorder [Not Recovered/Not Resolved]
  - Epstein-Barr virus infection [Unknown]
